FAERS Safety Report 8291307-9 (Version None)
Quarter: 2012Q2

REPORT INFORMATION
  Report Type: 
  Country: None (occurrence: None)
  Receive Date: 20120417
  Receipt Date: 20110629
  Transmission Date: 20120825
  Serious: No
  Sender: FDA-Public Use
  Company Number: US-PFIZER INC-2012016970

PATIENT
  Sex: Female

DRUGS (1)
  1. LO/OVRAL-28 [Suspect]
     Dosage: UNK
     Dates: start: 19960101

REACTIONS (2)
  - DYSMENORRHOEA [None]
  - METRORRHAGIA [None]
